FAERS Safety Report 4884764-9 (Version None)
Quarter: 2005Q4

REPORT INFORMATION
  Report Type: 
  Country: None (occurrence: None)
  Receive Date: 20051201
  Receipt Date: 20050923
  Transmission Date: 20060501
  Serious: No
  Sender: FDA-Public Use
  Company Number: 2005PV002456

PATIENT
  Age: 69 Year
  Sex: Male
  Weight: 128.368 kg

DRUGS (7)
  1. BYETTA [Suspect]
     Indication: DIABETES MELLITUS NON-INSULIN-DEPENDENT
     Dosage: 5 MCG; BID; SC
     Route: 058
     Dates: start: 20050919
  2. ACTOS [Concomitant]
  3. GLUCOTROL [Concomitant]
  4. METFORMIN [Concomitant]
  5. LANTUS [Concomitant]
  6. HYZAAR [Concomitant]
  7. COUMADIN [Concomitant]

REACTIONS (3)
  - ABDOMINAL DISTENSION [None]
  - BLOOD GLUCOSE INCREASED [None]
  - NERVOUSNESS [None]
